FAERS Safety Report 23221949 (Version 2)
Quarter: 2023Q4

REPORT INFORMATION
  Report Type: Spontaneous
  Country: US (occurrence: US)
  Receive Date: 20231123
  Receipt Date: 20231222
  Transmission Date: 20240110
  Serious: No
  Sender: FDA-Public Use
  Company Number: US-SA-SAC20231120000370

PATIENT
  Age: 67 Year
  Sex: Female

DRUGS (1)
  1. DUPIXENT [Suspect]
     Active Substance: DUPILUMAB
     Indication: Asthma
     Dosage: 300 MG, QOW
     Route: 058
     Dates: start: 20220913

REACTIONS (5)
  - Joint injury [Unknown]
  - Paraesthesia [Unknown]
  - Pain [Unknown]
  - Sinus headache [Unknown]
  - Meniscus injury [Unknown]

NARRATIVE: CASE EVENT DATE: 20220101
